FAERS Safety Report 4382056-8 (Version None)
Quarter: 2004Q2

REPORT INFORMATION
  Report Type: 
  Country: None (occurrence: None)
  Receive Date: 20040615
  Receipt Date: 20040523
  Transmission Date: 20050107
  Serious: Yes (Other)
  Sender: FDA-Public Use
  Company Number: A0512506A

PATIENT
  Sex: Male

DRUGS (1)
  1. NICODERM CQ [Suspect]
     Indication: EX-SMOKER
     Dosage: 21 MG/ TRANSDERMAL
     Route: 062

REACTIONS (3)
  - EAR HAEMORRHAGE [None]
  - HEADACHE [None]
  - HYPOAESTHESIA [None]
